FAERS Safety Report 14128702 (Version 1)
Quarter: 2017Q4

REPORT INFORMATION
  Report Type: Spontaneous
  Country: US (occurrence: US)
  Receive Date: 20171026
  Receipt Date: 20171026
  Transmission Date: 20180321
  Serious: Yes (Disabling, Other)
  Sender: FDA-Public Use
  Company Number: None

PATIENT
  Age: 68 Year
  Sex: Female
  Weight: 85.5 kg

DRUGS (8)
  1. LISINOPRIL. [Concomitant]
     Active Substance: LISINOPRIL
  2. MAGNESIUM [Concomitant]
     Active Substance: MAGNESIUM
  3. CIPROFLOXACIN HCL 500 MG TAB [Suspect]
     Active Substance: CIPROFLOXACIN HYDROCHLORIDE
     Indication: URINARY TRACT INFECTION
     Dosage: ?          QUANTITY:14 TABLET(S);?
     Route: 048
     Dates: start: 20170808, end: 20170812
  4. L-LYSINE [Concomitant]
     Active Substance: LYSINE
  5. PROPANOL [Concomitant]
     Active Substance: PROPRANOLOL HYDROCHLORIDE
  6. VITAMIN D3 [Concomitant]
     Active Substance: CHOLECALCIFEROL
  7. THYROXINE [Concomitant]
     Active Substance: LEVOTHYROXINE
  8. VITAMINS/MINERALS [Concomitant]

REACTIONS (15)
  - Screaming [None]
  - Dry eye [None]
  - Palpitations [None]
  - Pain [None]
  - Feeling abnormal [None]
  - Depression [None]
  - Toxicity to various agents [None]
  - Pain in extremity [None]
  - Gait disturbance [None]
  - Arthralgia [None]
  - Muscle spasms [None]
  - Paraesthesia [None]
  - Insomnia [None]
  - Urinary tract infection [None]
  - Skin cancer [None]

NARRATIVE: CASE EVENT DATE: 20170808
